FAERS Safety Report 12132877 (Version 1)
Quarter: 2016Q1

REPORT INFORMATION
  Report Type: Spontaneous
  Country: GB (occurrence: GB)
  Receive Date: 20160301
  Receipt Date: 20160301
  Transmission Date: 20160526
  Serious: Yes (Other)
  Sender: FDA-Public Use
  Company Number: GB-WATSON-2016-04005

PATIENT
  Age: 30 Year
  Sex: Female
  Weight: 88.9 kg

DRUGS (1)
  1. SERTRALINE [Suspect]
     Active Substance: SERTRALINE HYDROCHLORIDE
     Indication: DEPRESSION
     Dosage: 50 MG RISING TO 150 MG.UNK
     Route: 048
     Dates: start: 20120501, end: 20150701

REACTIONS (7)
  - Paraesthesia [Recovered/Resolved]
  - Vertigo [Recovered/Resolved]
  - Insomnia [Recovered/Resolved]
  - Hyperhidrosis [Recovered/Resolved]
  - Loss of libido [Recovered/Resolved with Sequelae]
  - Bradyphrenia [Recovered/Resolved]
  - Decreased interest [Recovered/Resolved with Sequelae]

NARRATIVE: CASE EVENT DATE: 20120501
